FAERS Safety Report 25786662 (Version 1)
Quarter: 2025Q3

REPORT INFORMATION
  Report Type: Spontaneous
  Country: US (occurrence: US)
  Receive Date: 20250910
  Receipt Date: 20250910
  Transmission Date: 20251021
  Serious: Yes (Other)
  Sender: DR REDDYS
  Company Number: None

PATIENT
  Age: 33 Year
  Sex: Male

DRUGS (2)
  1. GEMCITABINE [Suspect]
     Active Substance: GEMCITABINE
     Indication: Anaplastic large cell lymphoma T- and null-cell types
  2. OXALIPLATIN [Suspect]
     Active Substance: OXALIPLATIN
     Indication: Anaplastic large cell lymphoma T- and null-cell types

REACTIONS (2)
  - Pseudomembranous colitis [Unknown]
  - Clostridium difficile colitis [Unknown]
